FAERS Safety Report 9506195 (Version 1)
Quarter: 2013Q1

REPORT INFORMATION
  Report Type: Spontaneous
  Country: US (occurrence: None)
  Receive Date: 20130301
  Receipt Date: 20130301
  Transmission Date: 20140127
  Serious: Yes (Life-Threatening)
  Sender: FDA-Public Use
  Company Number: 153968

PATIENT
  Sex: 0

DRUGS (1)
  1. LIDOCAINE HYDROCHLORIDE [Suspect]
     Indication: ANAESTHESIA
     Route: 050
     Dates: start: 20090121, end: 20090121

REACTIONS (1)
  - Urticaria [None]
